FAERS Safety Report 7327867-1 (Version None)
Quarter: 2011Q1

REPORT INFORMATION
  Report Type: 
  Country: None (occurrence: None)
  Receive Date: 20110303
  Receipt Date: 20110224
  Transmission Date: 20110831
  Serious: No
  Sender: FDA-Public Use
  Company Number: US-PFIZER INC-2011041761

PATIENT
  Sex: Female

DRUGS (1)
  1. NAVANE [Suspect]
     Dosage: UNK

REACTIONS (2)
  - HYPERHIDROSIS [None]
  - MUSCULOSKELETAL STIFFNESS [None]
